FAERS Safety Report 4356816-3 (Version None)
Quarter: 2004Q2

REPORT INFORMATION
  Report Type: 
  Country: None (occurrence: None)
  Receive Date: 20040507
  Receipt Date: 20040429
  Transmission Date: 20050107
  Serious: Yes (Life-Threatening)
  Sender: FDA-Public Use
  Company Number: 2004US000489

PATIENT
  Age: 44 Year
  Sex: Female

DRUGS (6)
  1. AMBISOME [Suspect]
     Indication: ACUTE MYELOID LEUKAEMIA
     Dosage: 100.00 MG, UID/QD, INTRAVENOUS
     Route: 042
     Dates: start: 20040414, end: 20040414
  2. AMIKACIN [Concomitant]
  3. TARGOSID (TEICOPLANIN) INJECTION [Concomitant]
  4. DIFLUCAN [Concomitant]
  5. GRANOCYTE (LENOGRASTIM) INJECTION [Concomitant]
  6. ACYCLOVIR [Concomitant]

REACTIONS (3)
  - CYANOSIS [None]
  - GENERALISED ERYTHEMA [None]
  - LARYNGOSPASM [None]
